FAERS Safety Report 5506971-4 (Version None)
Quarter: 2007Q4

REPORT INFORMATION
  Report Type: 
  Country: None (occurrence: None)
  Receive Date: 20071102
  Receipt Date: 20071025
  Transmission Date: 20080405
  Serious: Yes (Hospitalization)
  Sender: FDA-Public Use
  Company Number: 163-21880-07100844

PATIENT
  Age: 81 Year
  Sex: Female

DRUGS (7)
  1. REVLIMID [Suspect]
     Indication: MYELODYSPLASTIC SYNDROME
     Dosage: 10 MG, 1 IN 1 D, ORAL
     Route: 048
     Dates: start: 20070917
  2. STARLIX [Concomitant]
  3. GLYBURIDE [Concomitant]
  4. METFORMIN HCL [Concomitant]
  5. ASPIRIN [Concomitant]
  6. VITAMIN B6 [Concomitant]
  7. FOLIC ACID [Concomitant]

REACTIONS (15)
  - ANAEMIA [None]
  - ASTHENIA [None]
  - CANDIDIASIS [None]
  - DIABETES MELLITUS INADEQUATE CONTROL [None]
  - DYSPNOEA [None]
  - HYPERHIDROSIS [None]
  - LEUKOPENIA [None]
  - MUSCULOSKELETAL PAIN [None]
  - NON-HODGKIN'S LYMPHOMA [None]
  - OEDEMA PERIPHERAL [None]
  - OTITIS MEDIA [None]
  - PHARYNGITIS [None]
  - REFUSAL OF TREATMENT BY PATIENT [None]
  - SKIN ULCER [None]
  - TYPE 2 DIABETES MELLITUS [None]
